FAERS Safety Report 9437343 (Version 4)
Quarter: 2013Q4

REPORT INFORMATION
  Report Type: Spontaneous
  Country: FR (occurrence: FR)
  Receive Date: 20130802
  Receipt Date: 20131011
  Transmission Date: 20140711
  Serious: Yes (Hospitalization, Other)
  Sender: FDA-Public Use
  Company Number: FR-PFIZER INC-2013219081

PATIENT
  Age: 81 Year
  Sex: Female

DRUGS (5)
  1. TAHOR [Suspect]
     Indication: HYPERCHOLESTEROLAEMIA
     Dosage: 40 MG, DAILY
     Route: 048
     Dates: start: 2011, end: 201307
  2. EUPANTOL [Suspect]
     Dosage: 40 MG, DAILY
     Route: 048
     Dates: start: 2011
  3. DUOPLAVIN [Suspect]
     Indication: MYOCARDIAL ISCHAEMIA
     Dosage: 75 MG, DAILY
     Route: 048
     Dates: start: 2011, end: 201306
  4. EZETROL [Suspect]
     Dosage: 75 MG, UNK
     Route: 048
     Dates: start: 201211
  5. BISOPROLOL FUMARATE [Concomitant]
     Dosage: UNK

REACTIONS (7)
  - Thrombocytopenia [Not Recovered/Not Resolved]
  - Anaemia [Recovering/Resolving]
  - Neutropenia [Recovering/Resolving]
  - Pancytopenia [Unknown]
  - Haemorrhagic disorder [Unknown]
  - Myelodysplastic syndrome [Not Recovered/Not Resolved]
  - Weight decreased [Unknown]
